FAERS Safety Report 6520522-7 (Version None)
Quarter: 2009Q4

REPORT INFORMATION
  Report Type: 
  Country: None (occurrence: None)
  Receive Date: 20091229
  Receipt Date: 20091216
  Transmission Date: 20100525
  Serious: Yes (Other)
  Sender: FDA-Public Use
  Company Number: B0619805A

PATIENT
  Age: 78 Year
  Sex: Male

DRUGS (2)
  1. KIVEXA [Suspect]
     Indication: HIV INFECTION
     Route: 048
  2. REYATAZ [Concomitant]
     Indication: HIV INFECTION
     Route: 065

REACTIONS (1)
  - ANGINA PECTORIS [None]
